FAERS Safety Report 13077085 (Version 3)
Quarter: 2017Q3

REPORT INFORMATION
  Report Type: Spontaneous
  Country: US (occurrence: US)
  Receive Date: 20161230
  Receipt Date: 20170705
  Transmission Date: 20171127
  Serious: Yes (Death)
  Sender: FDA-Public Use
  Company Number: US-IMPAX LABORATORIES, INC-2016-IPXL-02455

PATIENT
  Age: 89 Year
  Sex: Female
  Weight: 59 kg

DRUGS (2)
  1. POTASSIUM [Concomitant]
     Active Substance: POTASSIUM
     Indication: PRODUCT USED FOR UNKNOWN INDICATION
     Dosage: UNK
     Route: 065
  2. RYTARY [Suspect]
     Active Substance: CARBIDOPA\LEVODOPA
     Indication: PARKINSON^S DISEASE
     Dosage: (23.75/95) MG 1 CAPSULE, THREE TIMES DAILY
     Route: 048
     Dates: start: 2016, end: 2016

REACTIONS (7)
  - Syncope [Unknown]
  - Hallucination [Recovering/Resolving]
  - Respiratory arrest [Fatal]
  - Therapy cessation [Unknown]
  - Pulmonary oedema [Fatal]
  - Blood pressure fluctuation [Unknown]
  - Parkinsonism [Fatal]

NARRATIVE: CASE EVENT DATE: 2016
